FAERS Safety Report 4320926-7 (Version None)
Quarter: 2004Q1

REPORT INFORMATION
  Report Type: 
  Country: None (occurrence: None)
  Receive Date: 20040318
  Receipt Date: 20040304
  Transmission Date: 20041129
  Serious: Yes (Disabling)
  Sender: FDA-Public Use
  Company Number: UK065898

PATIENT
  Age: 35 Year
  Sex: Female
  Weight: 77 kg

DRUGS (5)
  1. NEULASTA [Suspect]
     Indication: CHEMOTHERAPY
     Dosage: SC
     Route: 058
     Dates: start: 20040109, end: 20040109
  2. NEUPOGEN [Suspect]
     Indication: CHEMOTHERAPY
     Dosage: 480 MCG, SC
     Route: 058
     Dates: start: 20040101
  3. FLUOROURACIL [Concomitant]
  4. EPIRUBICIN [Concomitant]
  5. CYCLOPHOSPHAMIDE [Concomitant]

REACTIONS (4)
  - ANXIETY [None]
  - DEPRESSED LEVEL OF CONSCIOUSNESS [None]
  - DIARRHOEA [None]
  - HYPOTENSION [None]
